FAERS Safety Report 4417565-6 (Version None)
Quarter: 2004Q3

REPORT INFORMATION
  Report Type: 
  Country: None (occurrence: None)
  Receive Date: 20040804
  Receipt Date: 20040723
  Transmission Date: 20050211
  Serious: Yes (Death, Hospitalization)
  Sender: FDA-Public Use
  Company Number: 04-07-1098

PATIENT
  Age: 84 Year
  Sex: Male

DRUGS (10)
  1. METFORMIN HCL [Suspect]
     Dosage: 2000MG
  2. AVANDIA [Suspect]
     Dosage: 4MG QD 11 MONTH(S)
  3. GLICLAZIDE [Concomitant]
  4. THYROXINE SODIUM [Concomitant]
  5. FLUOXETINE [Concomitant]
  6. DOTHIEPIN HYDROCHLORIDE [Concomitant]
  7. ASPIRIN [Concomitant]
  8. RABEPRAZOLE SODIUM [Concomitant]
  9. FRUSEMIDE [Concomitant]
  10. INSULIN [Concomitant]

REACTIONS (14)
  - BLOOD CREATININE INCREASED [None]
  - BUNDLE BRANCH BLOCK RIGHT [None]
  - CARDIAC FAILURE CONGESTIVE [None]
  - DYSPNOEA [None]
  - GENERAL PHYSICAL HEALTH DETERIORATION [None]
  - HEPATOMEGALY [None]
  - ISCHAEMIC HEPATITIS [None]
  - LACTIC ACIDOSIS [None]
  - LOWER RESPIRATORY TRACT INFECTION [None]
  - MALAISE [None]
  - OEDEMA PERIPHERAL [None]
  - PLEURAL EFFUSION [None]
  - PROTHROMBIN TIME PROLONGED [None]
  - TACHYPNOEA [None]
